FAERS Safety Report 5027612-9 (Version None)
Quarter: 2006Q2

REPORT INFORMATION
  Report Type: 
  Country: None (occurrence: None)
  Receive Date: 20060614
  Receipt Date: 20060614
  Transmission Date: 20061013
  Serious: Yes (Hospitalization)
  Sender: FDA-Public Use
  Company Number: None

PATIENT
  Sex: Female
  Weight: 79.8 kg

DRUGS (2)
  1. FLUOROURACIL [Suspect]
     Dosage: 20916 MG
     Dates: start: 20060531
  2. BEVACIZUMAB (RHUMAB VEGF) [Suspect]
     Dosage: 1523 MG
     Dates: start: 20060517

REACTIONS (1)
  - PULMONARY EMBOLISM [None]
